FAERS Safety Report 10171869 (Version 1)
Quarter: 2014Q2

REPORT INFORMATION
  Report Type: Spontaneous
  Country: US (occurrence: None)
  Receive Date: 20140512
  Receipt Date: 20140512
  Transmission Date: 20141212
  Serious: Yes (Death)
  Sender: FDA-Public Use
  Company Number: UTC-048292

PATIENT
  Age: 70 Year
  Sex: Female

DRUGS (9)
  1. REMODULIN (10 MILLIGRAM/MILLILITERS, INJECTION FOR INFUSION) (TREPROSTINIL SODIUM) [Suspect]
     Indication: PULMONARY ARTERIAL HYPERTENSION
     Dosage: 86.4 UG/KG (0.06 UG/KG, 1 IN 1 MIN) SUBCUTANEOUS
     Route: 058
     Dates: start: 20131216, end: 20140426
  2. FAMOTIDINE [Concomitant]
  3. TYLENOL [Concomitant]
  4. DULCOLAX [Concomitant]
  5. LOTRIMIN [Concomitant]
  6. SARNA [Concomitant]
  7. SILDENAFIL [Concomitant]
  8. HUMULIN [Concomitant]
  9. POTASSIUM CHLORIDE [Concomitant]

REACTIONS (1)
  - Death [None]
